FAERS Safety Report 6347609-6 (Version None)
Quarter: 2009Q3

REPORT INFORMATION
  Report Type: 
  Country: None (occurrence: None)
  Receive Date: 20090903
  Receipt Date: 20090903
  Transmission Date: 20100115
  Serious: Yes (Other)
  Sender: FDA-Public Use
  Company Number: None

PATIENT
  Sex: Male

DRUGS (1)
  1. OTRIVIN [Suspect]
     Dosage: ON AND OFF, NASAL
     Route: 045
     Dates: start: 20090201

REACTIONS (3)
  - DRUG DEPENDENCE [None]
  - NASAL CONGESTION [None]
  - REBOUND EFFECT [None]
